FAERS Safety Report 5270074-7 (Version None)
Quarter: 2007Q1

REPORT INFORMATION
  Report Type: 
  Country: None (occurrence: None)
  Receive Date: 20070314
  Receipt Date: 20070228
  Transmission Date: 20070707
  Serious: Yes (Hospitalization)
  Sender: FDA-Public Use
  Company Number: 200609IM000547

PATIENT
  Age: 60 Year
  Sex: Female
  Weight: 62.1428 kg

DRUGS (12)
  1. INTERFERON GAMMA-1B [Suspect]
     Indication: IDIOPATHIC PULMONARY FIBROSIS
     Dosage: 100 UG, TIW, SUBCUTANEOUS
     Route: 058
     Dates: start: 20060303, end: 20060315
  2. GABAPENTIN [Concomitant]
  3. INDOMETHACIN [Concomitant]
  4. ATORVASTATIN CALCIUM [Concomitant]
  5. LEVOTHYROXINE SODIUM [Concomitant]
  6. POTASSIUM CHLORIDE [Concomitant]
  7. LOSARTAN POTASSIUM [Concomitant]
  8. HYDROCHLOROTHIAZIDE [Concomitant]
  9. CARVEDILOL [Concomitant]
  10. PREDNISONE [Concomitant]
  11. DARVOCET [Concomitant]
  12. ED-TUSS [Concomitant]

REACTIONS (2)
  - CHRONIC OBSTRUCTIVE PULMONARY DISEASE [None]
  - CONDITION AGGRAVATED [None]
